FAERS Safety Report 19941457 (Version 1)
Quarter: 2021Q4

REPORT INFORMATION
  Report Type: Other
  Country: US (occurrence: US)
  Receive Date: 20211012
  Receipt Date: 20211012
  Transmission Date: 20220304
  Serious: Yes (Other)
  Sender: FDA-Public Use
  Company Number: US-ROCHE-2930242

PATIENT
  Sex: Male

DRUGS (1)
  1. VALGANCICLOVIR [Suspect]
     Active Substance: VALGANCICLOVIR
     Indication: Renal transplant
     Dosage: 1 TABLET TWICE DAILY
     Route: 065

REACTIONS (2)
  - Cytomegalovirus infection [Unknown]
  - Off label use [Unknown]
